FAERS Safety Report 10264355 (Version 3)
Quarter: 2014Q3

REPORT INFORMATION
  Report Type: Spontaneous
  Country: US (occurrence: US)
  Receive Date: 20140627
  Receipt Date: 20140808
  Transmission Date: 20150326
  Serious: Yes (Hospitalization, Disabling)
  Sender: FDA-Public Use
  Company Number: US-JNJFOC-20140612753

PATIENT
  Age: 79 Year
  Sex: Female

DRUGS (11)
  1. STELARA [Suspect]
     Active Substance: USTEKINUMAB
     Indication: PSORIASIS
     Dosage: 3 DOSES
     Route: 058
     Dates: start: 20131024, end: 20140320
  2. TEMADOR [Concomitant]
  3. ASA [Concomitant]
     Active Substance: ASPIRIN
  4. PRAVASTATIN [Concomitant]
     Active Substance: PRAVASTATIN\PRAVASTATIN SODIUM
  5. XARELTO [Concomitant]
     Active Substance: RIVAROXABAN
     Route: 065
  6. METOPROLOL [Concomitant]
     Active Substance: METOPROLOL
  7. XALATAN [Concomitant]
     Active Substance: LATANOPROST
  8. VITAMIN C [Concomitant]
     Active Substance: ASCORBIC ACID
  9. COSOPT [Concomitant]
     Active Substance: DORZOLAMIDE HYDROCHLORIDE\TIMOLOL MALEATE
  10. COQ10 [Concomitant]
     Active Substance: UBIDECARENONE
  11. MVI (MULTIVITAMINS) [Concomitant]

REACTIONS (2)
  - Leg amputation [Unknown]
  - Abscess limb [Unknown]

NARRATIVE: CASE EVENT DATE: 201402
